FAERS Safety Report 21517159 (Version 1)
Quarter: 2022Q4

REPORT INFORMATION
  Report Type: Other
  Country: US (occurrence: None)
  Receive Date: 20221028
  Receipt Date: 20221028
  Transmission Date: 20230113
  Serious: Yes (Hospitalization)
  Sender: FDA-Public Use
  Company Number: US-ROCHE-3204716

PATIENT
  Age: 68 Year
  Sex: Male
  Weight: 54.480 kg

DRUGS (3)
  1. OCREVUS [Suspect]
     Active Substance: OCRELIZUMAB
     Indication: Primary progressive multiple sclerosis
     Dosage: YES; DOT: 2/25/2021, 8/26/2021, 2/25/2022, 18/FEB/2018, 24/AUG/2018, 26/FEB/2020, 24/FEB/2019, 27/AU
     Route: 042
  2. AMPYRA [Concomitant]
     Active Substance: DALFAMPRIDINE
     Route: 065
  3. OXYGEN [Concomitant]
     Active Substance: OXYGEN
     Route: 065

REACTIONS (6)
  - Chronic obstructive pulmonary disease [Recovered/Resolved]
  - Oxygen saturation decreased [Recovered/Resolved]
  - Loss of consciousness [Recovered/Resolved]
  - Blood pressure decreased [Recovered/Resolved]
  - Dysstasia [Not Recovered/Not Resolved]
  - Weight decreased [Not Recovered/Not Resolved]

NARRATIVE: CASE EVENT DATE: 20210101
